FAERS Safety Report 18554738 (Version 1)
Quarter: 2020Q4

REPORT INFORMATION
  Report Type: Spontaneous
  Country: US (occurrence: US)
  Receive Date: 20201127
  Receipt Date: 20201127
  Transmission Date: 20210114
  Serious: Yes (Hospitalization, Other)
  Sender: FDA-Public Use
  Company Number: US-009507513-2011USA015318

PATIENT
  Age: 76 Year
  Sex: Male

DRUGS (5)
  1. PRINIVIL [Suspect]
     Active Substance: LISINOPRIL
     Indication: PRODUCT USED FOR UNKNOWN INDICATION
     Route: 065
  2. DECADRON [Concomitant]
     Active Substance: DEXAMETHASONE
     Indication: PRODUCT USED FOR UNKNOWN INDICATION
     Dosage: 40 MILLIGRAM, QW
     Route: 065
  3. TRAMADOL HYDROCHLORIDE. [Concomitant]
     Active Substance: TRAMADOL HYDROCHLORIDE
     Indication: BACK PAIN
     Dosage: UNK
     Route: 065
     Dates: start: 201405
  4. REVLIMID [Suspect]
     Active Substance: LENALIDOMIDE
     Indication: PLASMA CELL MYELOMA
     Dosage: 525 MILLIGRAM (ALSO REPORTED AS 25 MG), EVERY 28 DAYS
     Route: 048
     Dates: start: 20140225, end: 20140430
  5. REVLIMID [Suspect]
     Active Substance: LENALIDOMIDE
     Dosage: 315 MILLIGRAM (ALSO REPORTED AS 15 MG), EVERY 28 DAYS
     Route: 048
     Dates: start: 20140508

REACTIONS (3)
  - Anaemia [Recovered/Resolved]
  - Dysphonia [Recovering/Resolving]
  - Angioedema [Unknown]

NARRATIVE: CASE EVENT DATE: 20140424
